FAERS Safety Report 10242637 (Version 1)
Quarter: 2014Q2

REPORT INFORMATION
  Report Type: Spontaneous
  Country: JP (occurrence: JP)
  Receive Date: 20140617
  Receipt Date: 20140617
  Transmission Date: 20141212
  Serious: Yes (Other)
  Sender: FDA-Public Use
  Company Number: JP-BAXTER-2014BAX031649

PATIENT
  Age: 52 Year
  Sex: Female

DRUGS (8)
  1. ENDOXAN 1G [Suspect]
     Indication: STEM CELL TRANSPLANT
     Route: 065
  2. BUSULFAN [Suspect]
     Indication: BONE MARROW CONDITIONING REGIMEN
     Route: 048
  3. FLUDARABINE [Suspect]
     Indication: BONE MARROW CONDITIONING REGIMEN
     Route: 065
  4. CYCLOSPORINE A [Suspect]
     Indication: PROPHYLAXIS AGAINST GRAFT VERSUS HOST DISEASE
     Route: 065
  5. METHOTREXATE [Suspect]
     Indication: PROPHYLAXIS AGAINST GRAFT VERSUS HOST DISEASE
     Route: 065
  6. MITOXANTRONE [Concomitant]
     Indication: NON-HODGKIN^S LYMPHOMA
  7. ETOPOSIDE [Concomitant]
     Indication: NON-HODGKIN^S LYMPHOMA
  8. CYTARABINE [Concomitant]
     Indication: NON-HODGKIN^S LYMPHOMA

REACTIONS (4)
  - Stomatitis [Unknown]
  - Acute graft versus host disease [Unknown]
  - Cytomegalovirus test positive [Unknown]
  - Chronic graft versus host disease [Unknown]
